FAERS Safety Report 8419650-0 (Version None)
Quarter: 2012Q2

REPORT INFORMATION
  Report Type: 
  Country: None (occurrence: None)
  Receive Date: 20120607
  Receipt Date: 20120604
  Transmission Date: 20120825
  Serious: Yes (Death, Hospitalization)
  Sender: FDA-Public Use
  Company Number: US-CELGENEUS-163-21880-12051653

PATIENT
  Sex: Male

DRUGS (9)
  1. WHOLE BLOOD [Concomitant]
     Route: 041
  2. REVLIMID [Suspect]
     Dosage: 10 MILLIGRAM
     Route: 048
     Dates: start: 20120401
  3. VITAMIN B-12 [Concomitant]
     Dosage: 500 MICROGRAM
     Route: 065
  4. LISINOPRIL [Concomitant]
     Dosage: 10 MILLIGRAM
     Route: 065
  5. HYDROCODONE BITARTRATE + ACETAMINOPHEN [Concomitant]
     Dosage: 5/500MG
     Route: 065
  6. LATANOPROST [Concomitant]
     Dosage: 1 DROPS
     Route: 047
  7. MILK OF MAGNESIA TAB [Concomitant]
     Dosage: 1200MG/15ML
     Route: 065
  8. COLACE [Concomitant]
     Dosage: 100 MILLIGRAM
     Route: 065
  9. ARANESP [Concomitant]
     Route: 065
     Dates: start: 20120416

REACTIONS (3)
  - PNEUMONIA [None]
  - SEPSIS [None]
  - ACUTE RESPIRATORY DISTRESS SYNDROME [None]
